FAERS Safety Report 10202857 (Version 1)
Quarter: 2014Q2

REPORT INFORMATION
  Report Type: Spontaneous
  Country: US (occurrence: US)
  Receive Date: 20140522
  Receipt Date: 20140522
  Transmission Date: 20141212
  Serious: No
  Sender: FDA-Public Use
  Company Number: US-SA-2014SA039134

PATIENT
  Age: 59 Year
  Sex: Female

DRUGS (4)
  1. LANTUS [Suspect]
     Indication: BLOOD GLUCOSE
     Dosage: DOSE:200 UNIT(S)
     Route: 065
  2. LANTUS [Suspect]
     Indication: BLOOD GLUCOSE
     Dosage: DOSE:100 UNIT(S)
  3. LANTUS [Suspect]
     Indication: BLOOD GLUCOSE
     Route: 065
  4. METFORMIN [Concomitant]

REACTIONS (3)
  - Tremor [Unknown]
  - Blood glucose increased [Unknown]
  - Drug dose omission [Unknown]
